FAERS Safety Report 4583984-0 (Version None)
Quarter: 2005Q1

REPORT INFORMATION
  Report Type: 
  Country: None (occurrence: None)
  Receive Date: 20050216
  Receipt Date: 20040929
  Transmission Date: 20050727
  Serious: Yes (Hospitalization)
  Sender: FDA-Public Use
  Company Number: FR-MERCK-0409FRA00102

PATIENT
  Age: 73 Year
  Sex: Female

DRUGS (5)
  1. FOSAMAX [Suspect]
     Indication: OSTEOPOROSIS
     Route: 048
     Dates: end: 20040815
  2. OMEPRAZOLE [Suspect]
     Route: 048
     Dates: end: 20040815
  3. ALTHIAZIDE AND SPIRONOLACTONE [Suspect]
     Route: 048
     Dates: end: 20040815
  4. THIOCOLCHICOSIDE [Suspect]
     Route: 048
     Dates: end: 20040815
  5. BETAXOLOL HYDROCHLORIDE [Concomitant]
     Route: 048

REACTIONS (2)
  - BILIARY DILATATION [None]
  - PANCREATITIS [None]
